FAERS Safety Report 18588565 (Version 4)
Quarter: 2020Q4

REPORT INFORMATION
  Report Type: Spontaneous
  Country: US (occurrence: US)
  Receive Date: 20201208
  Receipt Date: 20201218
  Transmission Date: 20210114
  Serious: Yes (Death, Hospitalization, Other)
  Sender: FDA-Public Use
  Company Number: US-ROCHE-2727816

PATIENT
  Sex: Male

DRUGS (1)
  1. ALECENSA [Suspect]
     Active Substance: ALECTINIB HYDROCHLORIDE
     Indication: LUNG NEOPLASM MALIGNANT
     Dosage: 4 CAPSULE TWICE DAILY;
     Route: 048
     Dates: start: 20201009

REACTIONS (5)
  - Lung cancer metastatic [Fatal]
  - Pneumonia [Fatal]
  - Skeletal injury [Unknown]
  - Spinal fracture [Unknown]
  - Chronic obstructive pulmonary disease [Unknown]
